FAERS Safety Report 4264597-7 (Version None)
Quarter: 2004Q1

REPORT INFORMATION
  Report Type: 
  Country: None (occurrence: None)
  Receive Date: 20040106
  Receipt Date: 20031104
  Transmission Date: 20041129
  Serious: Yes (Disabling)
  Sender: FDA-Public Use
  Company Number: JP-ROCHE-351001

PATIENT
  Age: 50 Year
  Sex: Female
  Weight: 68 kg

DRUGS (1)
  1. XELODA [Suspect]
     Route: 048
     Dates: start: 20030710, end: 20030710

REACTIONS (5)
  - ANAEMIA [None]
  - CARDIAC FAILURE [None]
  - FLUSHING [None]
  - PALPITATIONS [None]
  - SINUS TACHYCARDIA [None]
